FAERS Safety Report 20423377 (Version 2)
Quarter: 2022Q2

REPORT INFORMATION
  Report Type: Spontaneous
  Country: FR (occurrence: FR)
  Receive Date: 20220203
  Receipt Date: 20220617
  Transmission Date: 20220720
  Serious: Yes (Hospitalization, Other)
  Sender: FDA-Public Use
  Company Number: FR-SA-2022SA030267

PATIENT
  Age: 63 Year
  Sex: Male

DRUGS (7)
  1. ELOCTA [Suspect]
     Active Substance: EFMOROCTOCOG ALFA
     Indication: Factor VIII deficiency
     Dosage: 3000 IU, QD
     Route: 042
     Dates: start: 20211008, end: 20211009
  2. ELOCTA [Suspect]
     Active Substance: EFMOROCTOCOG ALFA
     Indication: Factor VIII deficiency
     Dosage: 3000 IU, QD
     Route: 042
     Dates: start: 20211008, end: 20211009
  3. ELOCTA [Suspect]
     Active Substance: EFMOROCTOCOG ALFA
     Dosage: 6000 IU, QD
     Route: 042
     Dates: start: 20211010, end: 20211011
  4. ELOCTA [Suspect]
     Active Substance: EFMOROCTOCOG ALFA
     Dosage: 6000 IU, QD
     Route: 042
     Dates: start: 20211010, end: 20211011
  5. ELOCTA [Suspect]
     Active Substance: EFMOROCTOCOG ALFA
     Dosage: 3000 IU, QD
     Route: 042
     Dates: start: 20211012, end: 20211018
  6. ELOCTA [Suspect]
     Active Substance: EFMOROCTOCOG ALFA
     Dosage: 3000 IU, QD
     Route: 042
     Dates: start: 20211012, end: 20211018
  7. MODERNA COVID-19 VACCINE [Suspect]
     Active Substance: ELASOMERAN
     Indication: Immunisation
     Dosage: 1 DF, 1X
     Dates: start: 20220104, end: 20220104

REACTIONS (3)
  - Injection site haematoma [Not Recovered/Not Resolved]
  - Spontaneous haematoma [Not Recovered/Not Resolved]
  - Anti factor VIII antibody positive [Not Recovered/Not Resolved]

NARRATIVE: CASE EVENT DATE: 20220104
